FAERS Safety Report 6252060-3 (Version None)
Quarter: 2009Q2

REPORT INFORMATION
  Report Type: 
  Country: None (occurrence: None)
  Receive Date: 20090630
  Receipt Date: 20060311
  Transmission Date: 20091009
  Serious: Yes (Death, Hospitalization)
  Sender: FDA-Public Use
  Company Number: US-ROCHE-638698

PATIENT
  Sex: Male

DRUGS (26)
  1. ENFUVIRTIDE [Suspect]
     Route: 065
     Dates: start: 20040902, end: 20050401
  2. ENFUVIRTIDE [Suspect]
     Route: 065
     Dates: start: 20050609, end: 20060301
  3. KALETRA [Concomitant]
     Dates: start: 20040831, end: 20050406
  4. INVIRASE [Concomitant]
     Dates: start: 20040902, end: 20050401
  5. VIREAD [Concomitant]
     Dates: start: 20040902, end: 20050401
  6. LEXIVA [Concomitant]
     Dates: start: 20050203, end: 20050406
  7. NORVIR [Concomitant]
     Dates: start: 20050203, end: 20050401
  8. NORVIR [Concomitant]
     Dates: start: 20060302, end: 20060301
  9. VIRACEPT [Concomitant]
     Dates: start: 20050406, end: 20050401
  10. SUSTIVA [Concomitant]
     Dates: start: 20050531, end: 20060301
  11. EPZICOM [Concomitant]
     Dates: start: 20050609, end: 20060301
  12. APTIVUS [Concomitant]
     Dates: start: 20060302, end: 20060301
  13. DAPSONE [Concomitant]
     Dates: start: 20040902
  14. DIFLUCAN [Concomitant]
     Dates: start: 20050419
  15. DIFLUCAN [Concomitant]
     Dates: start: 20060323
  16. BIAXIN [Concomitant]
     Dates: start: 20060111, end: 20060301
  17. BIAXIN [Concomitant]
     Dates: start: 20060320
  18. CLINDAMYCIN [Concomitant]
     Dates: start: 20060311
  19. CLINDAMYCIN [Concomitant]
     Dosage: DOSE 600 MG, FREQUENCY: EVERY 8 HOUR.
     Dates: start: 20060315, end: 20060316
  20. PRIMAQUINE [Concomitant]
     Dates: start: 20060311, end: 20060317
  21. ROCEPHIN [Concomitant]
     Route: 042
     Dates: start: 20060311
  22. ZITHROMAX [Concomitant]
     Dates: start: 20060311
  23. AMPHOTERICIN B [Concomitant]
     Dosage: DOSE 1 GM, FREQUENCY REPORTED OVER ONE HOUR.
     Route: 042
     Dates: start: 20060314
  24. AMPHOTERICIN B [Concomitant]
     Dosage: DOSE 30 MG, FREQUENCY : OVER SIX HOUR.
     Route: 042
  25. AMPHOTERICIN B [Concomitant]
     Dosage: DOSE 30 MG, FREQUENCY : OVER SIX HOUR.
     Route: 042
     Dates: start: 20060315
  26. AMPHOTERICIN B [Concomitant]
     Dosage: FREQUENCY: OVER 6 HOUR.
     Route: 042
     Dates: start: 20060323

REACTIONS (6)
  - ALKALOSIS [None]
  - CRYPTOCOCCOSIS [None]
  - DEATH [None]
  - DIARRHOEA [None]
  - HYPERTENSION [None]
  - ILL-DEFINED DISORDER [None]
